FAERS Safety Report 6338535-7 (Version None)
Quarter: 2009Q3

REPORT INFORMATION
  Report Type: 
  Country: None (occurrence: None)
  Receive Date: 20090901
  Receipt Date: 20090819
  Transmission Date: 20100115
  Serious: Yes (Hospitalization)
  Sender: FDA-Public Use
  Company Number: 8050964

PATIENT
  Age: 55 Year
  Sex: Female

DRUGS (1)
  1. KEPPRA [Suspect]
     Dosage: 500 MG 2/D
     Dates: start: 20090810, end: 20090817

REACTIONS (1)
  - HEPATIC FAILURE [None]
